FAERS Safety Report 10175094 (Version 1)
Quarter: 2014Q2

REPORT INFORMATION
  Report Type: Spontaneous
  Country: CA (occurrence: CA)
  Receive Date: 20140515
  Receipt Date: 20140515
  Transmission Date: 20141212
  Serious: Yes (Other)
  Sender: FDA-Public Use
  Company Number: CA-B.I. PHARMACEUTICALS,INC./RIDGEFIELD-2014-BI-20858CN

PATIENT
  Age: 64 Year
  Sex: Female
  Weight: 80.73 kg

DRUGS (8)
  1. TRAJENTA [Suspect]
     Indication: PRODUCT USED FOR UNKNOWN INDICATION
     Dosage: 5 MG
     Route: 048
  2. ASA [Concomitant]
     Route: 065
  3. DIAMICRON [Concomitant]
     Route: 065
  4. LIPITOR [Concomitant]
     Route: 065
  5. METFORMIN [Concomitant]
     Route: 065
  6. QVAR [Concomitant]
     Dosage: FORMULATION: INHALATION
     Route: 065
  7. VENTOLIN [Concomitant]
     Route: 065
  8. ZOLOFT [Concomitant]
     Route: 065

REACTIONS (5)
  - Diarrhoea [Not Recovered/Not Resolved]
  - Lipase increased [Not Recovered/Not Resolved]
  - Headache [Not Recovered/Not Resolved]
  - Vomiting [Not Recovered/Not Resolved]
  - Weight decreased [Not Recovered/Not Resolved]
